FAERS Safety Report 5177719-0 (Version None)
Quarter: 2006Q4

REPORT INFORMATION
  Report Type: 
  Country: None (occurrence: None)
  Receive Date: 20061207
  Receipt Date: 20061124
  Transmission Date: 20070319
  Serious: Yes (Hospitalization)
  Sender: FDA-Public Use
  Company Number: 2006146504

PATIENT
  Age: 38 Year
  Sex: Female

DRUGS (9)
  1. GABAPENTIN [Suspect]
  2. TRAZODONE HCL [Suspect]
  3. TRAMADOL HCL [Suspect]
  4. AMITRIPTYLINE HCL [Suspect]
  5. CYCLOBENZAPRINE HCL [Suspect]
  6. DULOXETINE HYDROCHLORIDE [Suspect]
  7. SSRI (SSRI) [Concomitant]
  8. BENZODIAZEPINE DERIVATIVES [Concomitant]
  9. ALL OTHER THERAPEUTIC PRODUCTS [Concomitant]

REACTIONS (7)
  - COORDINATION ABNORMAL [None]
  - DRUG ABUSER [None]
  - DYSARTHRIA [None]
  - GAZE PALSY [None]
  - MULTIPLE DRUG OVERDOSE INTENTIONAL [None]
  - SINUS TACHYCARDIA [None]
  - SOMNOLENCE [None]
